FAERS Safety Report 6460247-X (Version None)
Quarter: 2009Q4

REPORT INFORMATION
  Report Type: 
  Country: None (occurrence: None)
  Receive Date: 20091124
  Receipt Date: 20091116
  Transmission Date: 20100525
  Serious: Yes (Death)
  Sender: FDA-Public Use
  Company Number: 2009AC000378

PATIENT
  Age: 46 Year
  Sex: Female

DRUGS (23)
  1. DIGOXIN [Suspect]
     Dosage: 0.25 MG; PO
     Route: 048
  2. TOPROL-XL [Concomitant]
  3. CARISOPRODOL [Concomitant]
  4. JANUMET [Concomitant]
  5. DIOVAN [Concomitant]
  6. TOPAMAX [Concomitant]
  7. NAPROXEN [Concomitant]
  8. FLEXERIL [Concomitant]
  9. AMBIEN [Concomitant]
  10. CHROMAGEN FORTE [Concomitant]
  11. PACERONE [Concomitant]
  12. LORTAB [Concomitant]
  13. TRAMADOL HCL [Concomitant]
  14. COLCHICINE [Concomitant]
  15. ALLOPURINOL [Concomitant]
  16. TRICOR [Concomitant]
  17. ZETIA [Concomitant]
  18. LOVASTATIN [Concomitant]
  19. PERCOCET [Concomitant]
  20. POTASSIUM [Concomitant]
  21. FROVA [Concomitant]
  22. MECLIZINE [Concomitant]
  23. DEMEROL [Concomitant]

REACTIONS (4)
  - BACK PAIN [None]
  - INJURY [None]
  - MICROCYTIC ANAEMIA [None]
  - RESTRICTIVE PULMONARY DISEASE [None]
